FAERS Safety Report 25859187 (Version 1)
Quarter: 2025Q3

REPORT INFORMATION
  Report Type: Spontaneous
  Country: US (occurrence: US)
  Receive Date: 20250929
  Receipt Date: 20250929
  Transmission Date: 20251021
  Serious: Yes (Other)
  Sender: PFIZER
  Company Number: US-PFIZER INC-202500121848

PATIENT
  Age: 70 Year
  Sex: Male

DRUGS (5)
  1. XELJANZ XR [Suspect]
     Active Substance: TOFACITINIB CITRATE
  2. NITROSTAT [Concomitant]
     Active Substance: NITROGLYCERIN
  3. MOBIC [Concomitant]
     Active Substance: MELOXICAM
  4. ZANAFLEX [Concomitant]
     Active Substance: TIZANIDINE HYDROCHLORIDE
  5. VITAMIN D NOS [Concomitant]
     Active Substance: CHOLECALCIFEROL\ERGOCALCIFEROL

REACTIONS (1)
  - Knee arthroplasty [Recovering/Resolving]
